FAERS Safety Report 13495618 (Version 1)
Quarter: 2017Q2

REPORT INFORMATION
  Report Type: Spontaneous
  Country: US (occurrence: US)
  Receive Date: 20170427
  Receipt Date: 20170427
  Transmission Date: 20170830
  Serious: No
  Sender: FDA-Public Use
  Company Number: None

PATIENT
  Age: 3 Year
  Sex: Female

DRUGS (14)
  1. ALDACTONE [Concomitant]
     Active Substance: SPIRONOLACTONE
  2. ALL DAY ALLERGY SOLN [Concomitant]
  3. REVATIO [Concomitant]
     Active Substance: SILDENAFIL CITRATE
  4. ASPIRIN. [Concomitant]
     Active Substance: ASPIRIN
  5. LASIX [Concomitant]
     Active Substance: FUROSEMIDE
  6. AMOXICILLIN. [Concomitant]
     Active Substance: AMOXICILLIN
  7. EPANED ORAL SOLN [Concomitant]
  8. TRACLEER [Suspect]
     Active Substance: BOSENTAN
     Indication: PULMONARY ARTERIAL HYPERTENSION
     Dosage: 62.5MG 1/2 TAB QD ORAL
     Route: 048
     Dates: start: 201608, end: 20170427
  9. ENALAPRIL [Concomitant]
     Active Substance: ENALAPRIL
  10. OMEPRAZOLE. [Concomitant]
     Active Substance: OMEPRAZOLE
  11. ALBUTEROL. [Concomitant]
     Active Substance: ALBUTEROL
  12. SINGULAIR [Concomitant]
     Active Substance: MONTELUKAST SODIUM
  13. QVAR [Concomitant]
     Active Substance: BECLOMETHASONE DIPROPIONATE
  14. FLONASE [Concomitant]
     Active Substance: FLUTICASONE PROPIONATE

REACTIONS (1)
  - Liver function test increased [None]

NARRATIVE: CASE EVENT DATE: 20170426
